FAERS Safety Report 4349094-2 (Version None)
Quarter: 2004Q2

REPORT INFORMATION
  Report Type: 
  Country: None (occurrence: None)
  Receive Date: 20040428
  Receipt Date: 20040419
  Transmission Date: 20050107
  Serious: Yes (Hospitalization, Disabling)
  Sender: FDA-Public Use
  Company Number: PHFR2004GB01819

PATIENT
  Age: 79 Year
  Sex: Female

DRUGS (4)
  1. TERBINAFINE [Suspect]
     Indication: NAIL TINEA
     Dosage: 250 MG/DAY
     Route: 048
     Dates: start: 20030908, end: 20031002
  2. ATENOLOL [Concomitant]
     Dosage: 50 MG/DAY
     Route: 048
     Dates: start: 19960101
  3. CLONAZEPAM [Concomitant]
     Dosage: 500MG/DAY
     Route: 048
     Dates: start: 20020101
  4. CO-PROXAMOL [Concomitant]
     Route: 048
     Dates: start: 19930101

REACTIONS (1)
  - PSORIASIS [None]
